FAERS Safety Report 4739157-1 (Version None)
Quarter: 2005Q3

REPORT INFORMATION
  Report Type: 
  Country: None (occurrence: None)
  Receive Date: 20050810
  Receipt Date: 20050428
  Transmission Date: 20060218
  Serious: No
  Sender: FDA-Public Use
  Company Number: US-GLAXOSMITHKLINE-A0556204A

PATIENT
  Age: 42 Year
  Sex: Female

DRUGS (3)
  1. PAXIL CR [Suspect]
     Dosage: 25MG PER DAY
     Route: 048
     Dates: start: 20020401, end: 20050421
  2. CLARITIN [Concomitant]
  3. TOPROL-XL [Concomitant]

REACTIONS (7)
  - AGITATION [None]
  - DISORIENTATION [None]
  - HEADACHE [None]
  - HYPERHIDROSIS [None]
  - NAUSEA [None]
  - PARAESTHESIA [None]
  - WEIGHT INCREASED [None]
